FAERS Safety Report 10198089 (Version 1)
Quarter: 2014Q2

REPORT INFORMATION
  Report Type: Spontaneous
  Country: US (occurrence: US)
  Receive Date: 20140527
  Receipt Date: 20140527
  Transmission Date: 20141212
  Serious: No
  Sender: FDA-Public Use
  Company Number: US-NOVEN-13US007639

PATIENT
  Age: 16 Year
  Sex: Male

DRUGS (4)
  1. DAYTRANA [Suspect]
     Indication: ATTENTION DEFICIT/HYPERACTIVITY DISORDER
     Dosage: 30 MG, QD FOR NINE HOURS
     Route: 062
     Dates: start: 201308
  2. DAYTRANA [Suspect]
     Dosage: 30 MG, UNK
     Route: 062
     Dates: end: 201306
  3. DAYTRANA [Suspect]
     Dosage: 20 MG, UNK
     Route: 062
  4. DAYTRANA [Suspect]
     Dosage: 10 MG, UNK
     Route: 062
     Dates: start: 2010

REACTIONS (1)
  - Decreased appetite [Not Recovered/Not Resolved]
